FAERS Safety Report 12485557 (Version 1)
Quarter: 2016Q2

REPORT INFORMATION
  Report Type: Spontaneous
  Country: CN (occurrence: CN)
  Receive Date: 20160621
  Receipt Date: 20160621
  Transmission Date: 20160815
  Serious: Yes (Other)
  Sender: FDA-Public Use
  Company Number: CN-009507513-1605CHN011745

PATIENT
  Age: 70 Year
  Sex: Male
  Weight: 60 kg

DRUGS (17)
  1. EMEND [Suspect]
     Active Substance: APREPITANT
     Dosage: 80 MG, ONCE, DAY 2
     Route: 048
     Dates: start: 20150517, end: 20150517
  2. RECOMBINANT HUMAN ENDOSTATIN [Concomitant]
     Active Substance: ENDOSTATIN
     Indication: CHEMOTHERAPY
     Dosage: 15 MG, QD
     Route: 041
     Dates: start: 20150516, end: 20150523
  3. PALONOSETRON HYDROCHLORIDE. [Concomitant]
     Active Substance: PALONOSETRON HYDROCHLORIDE
     Indication: PROPHYLAXIS OF NAUSEA AND VOMITING
     Dosage: TOTAL DAILY DOSE: 0.25 MG, FREQUENCY: QOD
     Route: 041
     Dates: start: 20150516, end: 20150518
  4. MOSAPRIDE [Concomitant]
     Active Substance: MOSAPRIDE
     Indication: PROPHYLAXIS
     Dosage: TOTAL DAILY DOSE 15 MG, TID
     Route: 048
     Dates: start: 20150518, end: 20150525
  5. MEGESTROL ACETATE. [Concomitant]
     Active Substance: MEGESTROL ACETATE
     Indication: CHEMOTHERAPY
     Dosage: TOTAL DAILY DOSE: 160 MG, FREQUENCY: BID
     Route: 048
     Dates: start: 20150518, end: 20150525
  6. JIN QIAO MAI PIAN [Concomitant]
     Dosage: TOTAL DAILY DOSE: 12 TABLETS, FREQUENCY: TID
     Route: 048
     Dates: start: 20150514, end: 20150515
  7. EMEND [Suspect]
     Active Substance: APREPITANT
     Indication: PROPHYLAXIS OF NAUSEA AND VOMITING
     Dosage: 125 MG, ONCE, DAY 1
     Route: 048
     Dates: start: 20150516, end: 20150516
  8. ASPIRIN. [Concomitant]
     Active Substance: ASPIRIN
     Indication: CORONARY ARTERY DISEASE
     Dosage: 100 MG, QD
     Route: 048
     Dates: start: 20150509, end: 20150515
  9. AMBROXOL HYDROCHLORIDE [Concomitant]
     Active Substance: AMBROXOL HYDROCHLORIDE
     Indication: PROPHYLAXIS
     Dosage: TOTAL DAILY DOSE: 30 MG, FREQUENCY: BID
     Route: 041
     Dates: start: 20150515, end: 20150525
  10. LACTULOSE. [Concomitant]
     Active Substance: LACTULOSE
     Indication: GASTROINTESTINAL PAIN
     Dosage: TOTAL DAILY DOSE: 45ML, TID
     Route: 048
     Dates: start: 20150517, end: 20150521
  11. GEMCITABINE [Concomitant]
     Active Substance: GEMCITABINE\GEMCITABINE HYDROCHLORIDE
     Indication: CHEMOTHERAPY
     Dosage: 1.6 G, D1, D8, TREATMENT CYCLE: 1/UNK, ,TREATMENT REGIMEN: GP AND RECOMBINANT HUMAN EDOSTATIN INJECT
     Route: 041
     Dates: start: 20150516, end: 20150523
  12. CISPLATIN. [Concomitant]
     Active Substance: CISPLATIN
     Indication: CHEMOTHERAPY
     Dosage: 40 MG D1-D3, TREATMENT CYCLE: 1/UNK; TREATMENT REGIMEN: GP AND RECOMBINANT HUMAN EDOSTATIN INJECTION
     Route: 041
     Dates: start: 20150516, end: 20150518
  13. DEXAMETHASONE SODIUM PHOSPHATE. [Concomitant]
     Active Substance: DEXAMETHASONE SODIUM PHOSPHATE
     Indication: PROPHYLAXIS OF NAUSEA AND VOMITING
     Dosage: 5 MG, QD
     Route: 041
     Dates: start: 20150516, end: 20150518
  14. AMLODIPINE BESYLATE. [Concomitant]
     Active Substance: AMLODIPINE BESYLATE
     Indication: HYPERTENSION
     Dosage: 5 MG, QD
     Route: 048
     Dates: start: 20150514, end: 20150515
  15. EMEND [Suspect]
     Active Substance: APREPITANT
     Dosage: 80 MG, ONCE, DAY 3
     Route: 048
     Dates: start: 20150518, end: 20150518
  16. SHEN QI FU ZHENG ZHU SHE YE [Concomitant]
     Indication: SUPPORTIVE CARE
     Dosage: 250 ML, QD
     Route: 041
     Dates: start: 20150516, end: 20150525
  17. FAT (UNSPECIFIED) [Concomitant]
     Indication: NUTRITIONAL SUPPLEMENTATION
     Dosage: 250 ML, QD
     Route: 041
     Dates: start: 20150518, end: 20150525

REACTIONS (2)
  - Epilepsy [Recovered/Resolved]
  - Hiccups [Recovered/Resolved]

NARRATIVE: CASE EVENT DATE: 20150518
